FAERS Safety Report 18213229 (Version 3)
Quarter: 2020Q3

REPORT INFORMATION
  Report Type: Report from Study
  Country: ES (occurrence: ES)
  Receive Date: 20200831
  Receipt Date: 20200925
  Transmission Date: 20201103
  Serious: Yes (Other)
  Sender: FDA-Public Use
  Company Number: ES-JNJFOC-20200829764

PATIENT

DRUGS (11)
  1. STELARA [Suspect]
     Active Substance: USTEKINUMAB
     Route: 058
  2. METHOTREXATE. [Concomitant]
     Active Substance: METHOTREXATE
     Route: 065
  3. MERCAPTOPURINE. [Concomitant]
     Active Substance: MERCAPTOPURINE
     Indication: PRODUCT USED FOR UNKNOWN INDICATION
     Route: 065
  4. STELARA [Suspect]
     Active Substance: USTEKINUMAB
     Dosage: (WEIGHT, }85 KG)
     Route: 042
  5. STELARA [Suspect]
     Active Substance: USTEKINUMAB
     Route: 058
  6. STELARA [Suspect]
     Active Substance: USTEKINUMAB
     Route: 058
  7. STELARA [Suspect]
     Active Substance: USTEKINUMAB
     Dosage: (WEIGHT, }55 KG AND LSSEQL85 KG)
     Route: 042
  8. STELARA [Suspect]
     Active Substance: USTEKINUMAB
     Indication: CROHN^S DISEASE
     Dosage: (WEIGHT, LSSEQL55 KG)
     Route: 042
  9. STELARA [Suspect]
     Active Substance: USTEKINUMAB
     Dosage: ((WEIGHT, }55 KG)
     Route: 042
  10. STELARA [Suspect]
     Active Substance: USTEKINUMAB
     Dosage: AT WEEK 8.
     Route: 058
  11. AZATHIOPRINE. [Concomitant]
     Active Substance: AZATHIOPRINE
     Route: 065

REACTIONS (40)
  - Omphalitis [Unknown]
  - Bladder cancer [Unknown]
  - Escherichia infection [Unknown]
  - Gastroenteritis norovirus [Unknown]
  - Clostridial infection [Unknown]
  - Lymph node tuberculosis [Unknown]
  - Therapeutic response decreased [Unknown]
  - Abdominal abscess [Unknown]
  - Nasopharyngitis [Unknown]
  - Myositis [Unknown]
  - Fatigue [Unknown]
  - Sinusitis [Unknown]
  - Bronchitis [Unknown]
  - Paraesthesia [Unknown]
  - Psoas abscess [Unknown]
  - Headache [Unknown]
  - Influenza [Unknown]
  - Influenza like illness [Unknown]
  - Psoriasis [Unknown]
  - Off label use [Unknown]
  - Deep vein thrombosis [Unknown]
  - Skin reaction [Unknown]
  - Nausea [Unknown]
  - Herpes zoster [Unknown]
  - Oral herpes [Unknown]
  - Arthralgia [Unknown]
  - Treatment failure [Unknown]
  - Pyelonephritis [Unknown]
  - Cardiac failure [Unknown]
  - Pneumonia [Unknown]
  - Alopecia [Unknown]
  - Abdominal pain [Unknown]
  - Vaginal infection [Unknown]
  - Cholelithiasis [Unknown]
  - Product use issue [Unknown]
  - Optic neuritis [Unknown]
  - Anal abscess [Unknown]
  - Pulmonary tuberculosis [Unknown]
  - Renal colic [Unknown]
  - Arthritis [Unknown]
